FAERS Safety Report 5303278-5 (Version None)
Quarter: 2007Q2

REPORT INFORMATION
  Report Type: 
  Country: None (occurrence: None)
  Receive Date: 20070420
  Receipt Date: 20070418
  Transmission Date: 20071010
  Serious: Yes (Other)
  Sender: FDA-Public Use
  Company Number: US-GLAXOSMITHKLINE-A0647807A

PATIENT
  Age: 65 Year
  Sex: Male

DRUGS (2)
  1. AVANDIA [Suspect]
     Route: 048
     Dates: end: 20070414
  2. METFORMIN HCL [Concomitant]

REACTIONS (2)
  - IMPAIRED DRIVING ABILITY [None]
  - VISUAL ACUITY REDUCED [None]
